FAERS Safety Report 4943032-7 (Version None)
Quarter: 2006Q1

REPORT INFORMATION
  Report Type: 
  Country: None (occurrence: None)
  Receive Date: 20060314
  Receipt Date: 20040624
  Transmission Date: 20060701
  Serious: Yes (Other)
  Sender: FDA-Public Use
  Company Number: SE-SANOFI-SYNTHELABO-D01200402

PATIENT
  Age: 61 Year
  Sex: Male
  Weight: 84 kg

DRUGS (6)
  1. FONDAPARINUX [Suspect]
     Indication: ACUTE CORONARY SYNDROME
     Dosage: 2.5MG PER DAY
     Route: 058
     Dates: start: 20031008, end: 20031012
  2. ATENOLOL [Concomitant]
  3. CLOPIDOGREL [Concomitant]
  4. ENALAPRIL MALEATE [Concomitant]
  5. SIMVASTATIN [Concomitant]
  6. TROMBYL [Concomitant]

REACTIONS (1)
  - CATHETER RELATED COMPLICATION [None]
